FAERS Safety Report 9257454 (Version 1)
Quarter: 2013Q1

REPORT INFORMATION
  Report Type: Spontaneous
  Country: US (occurrence: None)
  Receive Date: 20121212
  Receipt Date: 20121212
  Transmission Date: 20140127
  Serious: No
  Sender: FDA-Public Use
  Company Number: 1208USA003027

PATIENT
  Age: 59 Year
  Sex: Female
  Weight: 61.2 kg

DRUGS (4)
  1. VICTRELIS [Suspect]
     Indication: HEPATITIS C
     Route: 048
  2. PEGINTRON [Suspect]
     Indication: HEPATITIS C
     Route: 058
     Dates: start: 20120719
  3. RIBASPHERE (RIBAVIRIN) [Concomitant]
  4. PEGASYS (PEGINTERFERON ALFA-2A) [Concomitant]

REACTIONS (5)
  - Headache [None]
  - Nausea [None]
  - Sleep disorder [None]
  - Fatigue [None]
  - Depression [None]
